FAERS Safety Report 8158742-0 (Version None)
Quarter: 2012Q1

REPORT INFORMATION
  Report Type: 
  Country: None (occurrence: None)
  Receive Date: 20120217
  Receipt Date: 20120210
  Transmission Date: 20120608
  Serious: Yes (Other)
  Sender: FDA-Public Use
  Company Number: 2012SP002246

PATIENT
  Age: 24 Year
  Sex: Female
  Weight: 113 kg

DRUGS (1)
  1. NEXPLANON [Suspect]
     Indication: PRODUCT USED FOR UNKNOWN INDICATION
     Dosage: 68 MG; ; SBDE
     Dates: start: 20110705, end: 20120110

REACTIONS (5)
  - DEVICE BREAKAGE [None]
  - DRUG INEFFECTIVE [None]
  - ABORTION SPONTANEOUS [None]
  - MATERNAL EXPOSURE DURING DELIVERY [None]
  - PREGNANCY WITH IMPLANT CONTRACEPTIVE [None]
